FAERS Safety Report 6142764-5 (Version None)
Quarter: 2009Q2

REPORT INFORMATION
  Report Type: 
  Country: None (occurrence: None)
  Receive Date: 20090403
  Receipt Date: 20090326
  Transmission Date: 20091009
  Serious: Yes (Other)
  Sender: FDA-Public Use
  Company Number: AU-AVENTIS-200913265GDDC

PATIENT
  Age: 65 Year
  Sex: Female

DRUGS (13)
  1. ARAVA [Suspect]
     Indication: RHEUMATOID ARTHRITIS
     Route: 048
     Dates: start: 20010101
  2. ARAVA [Suspect]
     Route: 048
     Dates: start: 20070509
  3. METHOTREXATE [Concomitant]
  4. PLAQUENIL                          /00072601/ [Concomitant]
  5. RADIOTHERAPY [Concomitant]
  6. FOLIC ACID [Concomitant]
  7. TRAMADOL HCL [Concomitant]
  8. NEXIUM [Concomitant]
  9. EFFEXOR [Concomitant]
  10. ACQUIN [Concomitant]
  11. PREDNISONE [Concomitant]
  12. ENDONE [Concomitant]
  13. TEMAZEPAM [Concomitant]

REACTIONS (1)
  - BREAST CANCER FEMALE [None]
